FAERS Safety Report 11972628 (Version 13)
Quarter: 2018Q1

REPORT INFORMATION
  Report Type: Report from Study
  Country: US (occurrence: US)
  Receive Date: 20160128
  Receipt Date: 20180116
  Transmission Date: 20180508
  Serious: Yes (Hospitalization)
  Sender: FDA-Public Use
  Company Number: US-ACTELION-A-US2016-130480

PATIENT
  Age: 4 Year
  Sex: Male
  Weight: 16.78 kg

DRUGS (9)
  1. SILDENAFIL. [Concomitant]
     Active Substance: SILDENAFIL
     Dosage: 10 MG/ML, 2.8 ML Q6
     Dates: start: 20160304
  2. REMODULIN [Concomitant]
     Active Substance: TREPROSTINIL
  3. WARFARIN [Concomitant]
     Active Substance: WARFARIN
     Dosage: 1 1/2 MG M-F
     Dates: start: 20170818
  4. LASIX [Concomitant]
     Active Substance: FUROSEMIDE
     Dosage: 10 MG/ML, 1 ML QD
     Dates: start: 20160810
  5. WARFARIN [Concomitant]
     Active Substance: WARFARIN
     Dosage: 2 MG, SAT, SUN
     Dates: start: 20170818
  6. TRACLEER [Suspect]
     Active Substance: BOSENTAN
     Indication: PULMONARY HYPERTENSION
     Dosage: 31.25 MG, BID
     Route: 048
     Dates: start: 20170613
  7. TRACLEER [Suspect]
     Active Substance: BOSENTAN
     Dosage: 8.2 ML, BID (31.25 MG IN 10 ML)
     Route: 048
  8. TRACLEER [Suspect]
     Active Substance: BOSENTAN
     Dosage: 62.5 MG, TAB, 1/2 TAB IN 10 ML, 10 ML BID
     Route: 048
  9. TRACLEER [Suspect]
     Active Substance: BOSENTAN
     Dosage: 25.6 MG, BID
     Route: 048

REACTIONS (18)
  - Cough [Unknown]
  - Drug administration error [Unknown]
  - Alopecia [Unknown]
  - Respiratory syncytial virus infection [Unknown]
  - Pyrexia [Unknown]
  - Sleep apnoea syndrome [Unknown]
  - Blood potassium decreased [Recovered/Resolved]
  - Hypersensitivity [Unknown]
  - Pneumonia [Unknown]
  - Nasal discharge discolouration [Unknown]
  - Heart disease congenital [Unknown]
  - Respiratory distress [Unknown]
  - Thrombocytopenia [Recovered/Resolved]
  - Rash [Unknown]
  - Epistaxis [Unknown]
  - Hordeolum [Not Recovered/Not Resolved]
  - Hypokalaemia [Recovered/Resolved]
  - Syncope [Unknown]

NARRATIVE: CASE EVENT DATE: 201706
